FAERS Safety Report 10197430 (Version 3)
Quarter: 2014Q2

REPORT INFORMATION
  Report Type: Spontaneous
  Country: US (occurrence: US)
  Receive Date: 20140527
  Receipt Date: 20140611
  Transmission Date: 20141212
  Serious: Yes (Hospitalization)
  Sender: FDA-Public Use
  Company Number: US-BAXTER-2014BAX026112

PATIENT
  Age: 56 Year
  Sex: Male

DRUGS (6)
  1. DIANEAL LOW CALCIUM [Suspect]
     Indication: PERITONEAL DIALYSIS
     Route: 033
     Dates: start: 201006
  2. DIANEAL LOW CALCIUM [Suspect]
     Route: 033
     Dates: start: 201006
  3. DIANEAL LOW CALCIUM [Suspect]
     Indication: PERITONEAL DIALYSIS
     Route: 033
     Dates: start: 201006
  4. DIANEAL LOW CALCIUM [Suspect]
     Route: 033
     Dates: start: 201006
  5. DIANEAL LOW CALCIUM (ULTRABAG) [Suspect]
     Indication: PERITONEAL DIALYSIS
     Route: 033
  6. DIANEAL LOW CALCIUM (ULTRABAG) [Suspect]
     Dosage: LAST FILL
     Route: 033
     Dates: start: 201006

REACTIONS (3)
  - Gastric infection [Recovered/Resolved]
  - Peritonitis [Recovering/Resolving]
  - Swelling [Recovering/Resolving]
